FAERS Safety Report 19100339 (Version 2)
Quarter: 2021Q2

REPORT INFORMATION
  Report Type: Report from Study
  Country: US (occurrence: US)
  Receive Date: 20210407
  Receipt Date: 20210420
  Transmission Date: 20210717
  Serious: Yes (Hospitalization)
  Sender: FDA-Public Use
  Company Number: US-JNJFOC-20210354264

PATIENT
  Age: 37 Year
  Sex: Female
  Weight: 72.64 kg

DRUGS (37)
  1. SPRAVATO [Suspect]
     Active Substance: ESKETAMINE
     Indication: DEPRESSION
     Dosage: X 1 DOSE
     Dates: start: 20200729
  2. ZOLPIDEM [Concomitant]
     Active Substance: ZOLPIDEM TARTRATE
     Route: 048
     Dates: start: 20190322
  3. VYVANSE [Concomitant]
     Active Substance: LISDEXAMFETAMINE DIMESYLATE
     Route: 048
     Dates: start: 20191017
  4. PROMETHEGAN [Concomitant]
     Active Substance: PROMETHAZINE HYDROCHLORIDE
     Indication: NAUSEA
     Dosage: 1?2 SUPPOSITORIES AS NEEDED
     Route: 054
     Dates: start: 20201003, end: 20201211
  5. FENTANYL. [Concomitant]
     Active Substance: FENTANYL
     Route: 062
     Dates: start: 20180226
  6. BENZTROPINE [BENZATROPINE] [Concomitant]
     Active Substance: BENZTROPINE
     Route: 048
     Dates: start: 20201003, end: 20201112
  7. MYDAYIS [Concomitant]
     Active Substance: AMPHETAMINE ASPARTATE\AMPHETAMINE SULFATE\DEXTROAMPHETAMINE SACCHARATE\DEXTROAMPHETAMINE SULFATE
     Route: 048
     Dates: start: 20191212
  8. SAPHRIS [Concomitant]
     Active Substance: ASENAPINE MALEATE
     Route: 060
     Dates: start: 20181219
  9. AMBIEN [Concomitant]
     Active Substance: ZOLPIDEM TARTRATE
     Route: 048
     Dates: start: 20201003, end: 20201027
  10. AMBIEN [Concomitant]
     Active Substance: ZOLPIDEM TARTRATE
     Route: 048
     Dates: start: 20181219
  11. XANAX [Concomitant]
     Active Substance: ALPRAZOLAM
     Route: 048
     Dates: start: 20181219
  12. MINIPRESS [Concomitant]
     Active Substance: PRAZOSIN HYDROCHLORIDE
     Route: 048
     Dates: start: 20180622
  13. PROPRANOLOL [Concomitant]
     Active Substance: PROPRANOLOL HYDROCHLORIDE
     Route: 048
     Dates: start: 20181219
  14. LITHIUM. [Concomitant]
     Active Substance: LITHIUM
     Route: 048
     Dates: start: 20181219
  15. NORCO [Concomitant]
     Active Substance: ACETAMINOPHEN\HYDROCODONE BITARTRATE
     Dosage: DOSE 10/325 MG THREE TIMES DAILY EVERY SIX HOURS
     Route: 048
     Dates: start: 20180226
  16. VYVANSE [Concomitant]
     Active Substance: LISDEXAMFETAMINE DIMESYLATE
     Route: 048
     Dates: start: 20201003, end: 20201112
  17. ARIPIPRAZOLE. [Concomitant]
     Active Substance: ARIPIPRAZOLE
     Route: 048
     Dates: start: 20201003, end: 20201112
  18. AMBIEN [Concomitant]
     Active Substance: ZOLPIDEM TARTRATE
     Route: 048
     Dates: start: 20201027, end: 20201112
  19. XANAX [Concomitant]
     Active Substance: ALPRAZOLAM
     Route: 048
     Dates: start: 20190308
  20. MIRTAZEPINE TEVA [Concomitant]
     Active Substance: MIRTAZAPINE
     Route: 048
     Dates: start: 20181219
  21. VRAYLAR [Concomitant]
     Active Substance: CARIPRAZINE
     Route: 048
     Dates: start: 20180517
  22. SPRAVATO [Suspect]
     Active Substance: ESKETAMINE
     Dates: end: 20201021
  23. HYDROCODONE/ACETAMINOPHEN [Concomitant]
     Active Substance: ACETAMINOPHEN\HYDROCODONE
     Dosage: DOSE 7.5/325
     Dates: start: 20191010
  24. PALIPERIDONE. [Concomitant]
     Active Substance: PALIPERIDONE
     Route: 048
     Dates: start: 20180226
  25. SPRAVATO [Suspect]
     Active Substance: ESKETAMINE
     Dates: start: 20200723
  26. TOLTERODINE [Concomitant]
     Active Substance: TOLTERODINE
     Dates: start: 20190325
  27. CYMBALTA [Concomitant]
     Active Substance: DULOXETINE HYDROCHLORIDE
     Route: 048
     Dates: start: 20201112, end: 20201215
  28. PHENDIMETRAZINE. [Concomitant]
     Active Substance: PHENDIMETRAZINE TARTRATE
     Route: 048
     Dates: start: 20190310
  29. SAPHRIS [Concomitant]
     Active Substance: ASENAPINE MALEATE
     Route: 060
     Dates: start: 20181016
  30. CYMBALTA [Concomitant]
     Active Substance: DULOXETINE HYDROCHLORIDE
     Route: 048
     Dates: start: 20201003, end: 20201112
  31. CYCLOBENZAPRIN [Concomitant]
     Active Substance: CYCLOBENZAPRINE
     Route: 048
     Dates: start: 20180226
  32. CBD ADREXOL [Concomitant]
     Dates: start: 20191017
  33. BENZTROPINE [BENZATROPINE] [Concomitant]
     Active Substance: BENZTROPINE
     Route: 048
     Dates: start: 20181219
  34. XANAX [Concomitant]
     Active Substance: ALPRAZOLAM
     Route: 048
     Dates: start: 20201003, end: 20201112
  35. PHENDIMETRAZINE. [Concomitant]
     Active Substance: PHENDIMETRAZINE TARTRATE
     Route: 048
     Dates: start: 20181011
  36. LITHIUM. [Concomitant]
     Active Substance: LITHIUM
     Route: 048
     Dates: start: 20181121, end: 20181219
  37. VENTOLIN HFA [Concomitant]
     Active Substance: ALBUTEROL SULFATE
     Dates: start: 20181011

REACTIONS (1)
  - Road traffic accident [Recovering/Resolving]

NARRATIVE: CASE EVENT DATE: 20201028
